FAERS Safety Report 5730258-8 (Version None)
Quarter: 2008Q2

REPORT INFORMATION
  Report Type: 
  Country: None (occurrence: None)
  Receive Date: 20080505
  Receipt Date: 20080505
  Transmission Date: 20081010
  Serious: No
  Sender: FDA-Public Use
  Company Number: None

PATIENT
  Sex: Male
  Weight: 86.1834 kg

DRUGS (2)
  1. XOPENEX [Suspect]
     Indication: ASTHMA
     Dosage: 17G 4 DAILY INHAL
     Route: 055
     Dates: start: 20070701, end: 20080502
  2. PROVENTIL [Suspect]
     Indication: ASTHMA
     Dosage: 17G 4 DAILY INHAL
     Route: 055
     Dates: start: 20070815, end: 20080201

REACTIONS (4)
  - ASTHMA [None]
  - CONCOMITANT DISEASE AGGRAVATED [None]
  - DRUG INEFFECTIVE [None]
  - PARADOXICAL DRUG REACTION [None]
